FAERS Safety Report 5287941-0 (Version None)
Quarter: 2007Q2

REPORT INFORMATION
  Report Type: 
  Country: None (occurrence: None)
  Receive Date: 20070405
  Receipt Date: 20070329
  Transmission Date: 20071010
  Serious: Yes (Other)
  Sender: FDA-Public Use
  Company Number: US-JNJFOC-20070204713

PATIENT
  Age: 63 Year
  Sex: Female
  Weight: 103.87 kg

DRUGS (6)
  1. DOXIL [Suspect]
     Indication: BREAST CANCER
     Route: 042
  2. VITAMIN CAP [Concomitant]
  3. CALCIUM [Concomitant]
  4. VITAMIN E [Concomitant]
  5. ALEVE [Concomitant]
  6. COLACE [Concomitant]

REACTIONS (1)
  - SYSTEMIC LUPUS ERYTHEMATOSUS [None]
